FAERS Safety Report 4706298-4 (Version None)
Quarter: 2005Q2

REPORT INFORMATION
  Report Type: 
  Country: None (occurrence: None)
  Receive Date: 20050629
  Receipt Date: 20050309
  Transmission Date: 20051028
  Serious: Yes (Hospitalization)
  Sender: FDA-Public Use
  Company Number: 05P-163-0290371-00

PATIENT
  Age: 72 Year
  Sex: Female

DRUGS (11)
  1. HUMIRA [Suspect]
     Indication: RHEUMATOID ARTHRITIS
     Dosage: 40 MG, 1 IN 1 WK, SUBCUTANEOUS
     Route: 058
     Dates: start: 20030401, end: 20041201
  2. HUMIRA [Suspect]
     Indication: RHEUMATOID ARTHRITIS
     Dosage: 40 MG, 1 IN 1 WK, SUBCUTANEOUS
     Route: 058
     Dates: start: 20050101, end: 20050201
  3. VICODIN [Concomitant]
  4. PREDNISONE TAB [Concomitant]
  5. LEVOTHYROXINE SODIUM [Concomitant]
  6. THEOPHYYLINE [Concomitant]
  7. ENALAPRIL MALEATE [Concomitant]
  8. ATENOLOL [Concomitant]
  9. RALOXIFENE HYDROCHORIDE [Concomitant]
  10. FOLIC ACID [Concomitant]
  11. SULFALATE [Concomitant]

REACTIONS (4)
  - IMPAIRED HEALING [None]
  - LOCALISED INFECTION [None]
  - PAIN [None]
  - STAPHYLOCOCCAL INFECTION [None]
